FAERS Safety Report 19814150 (Version 1)
Quarter: 2021Q3

REPORT INFORMATION
  Report Type: Spontaneous
  Country: IT (occurrence: IT)
  Receive Date: 20210909
  Receipt Date: 20210909
  Transmission Date: 20211014
  Serious: Yes (Death, Other)
  Sender: FDA-Public Use
  Company Number: IT-MYLANLABS-2021M1060525

PATIENT
  Age: 43 Year
  Sex: Male

DRUGS (3)
  1. METHADONE HYDROCHLORIDE. [Interacting]
     Active Substance: METHADONE HYDROCHLORIDE
     Indication: PRODUCT USED FOR UNKNOWN INDICATION
     Dosage: UNK
  2. VENLAFAXINE [Suspect]
     Active Substance: VENLAFAXINE HYDROCHLORIDE
     Indication: PRODUCT USED FOR UNKNOWN INDICATION
     Dosage: UNK
  3. COCAINE [Interacting]
     Active Substance: COCAINE
     Indication: PRODUCT USED FOR UNKNOWN INDICATION
     Dosage: UNK

REACTIONS (7)
  - Pulmonary oedema [Unknown]
  - Drug abuse [Unknown]
  - Prescription drug used without a prescription [Unknown]
  - Drug interaction [Unknown]
  - Myocardial necrosis [Unknown]
  - Toxicity to various agents [Fatal]
  - Pulmonary congestion [Unknown]
